FAERS Safety Report 24874716 (Version 1)
Quarter: 2025Q1

REPORT INFORMATION
  Report Type: Spontaneous
  Country: CN (occurrence: CN)
  Receive Date: 20250122
  Receipt Date: 20250122
  Transmission Date: 20250409
  Serious: Yes (Hospitalization)
  Sender: PFIZER
  Company Number: CN-PFIZER INC-PV202500007860

PATIENT
  Age: 69 Year
  Sex: Female

DRUGS (2)
  1. IBRANCE [Suspect]
     Active Substance: PALBOCICLIB
     Indication: Neoplasm malignant
     Dosage: 125 MG, 1X/DAY
     Route: 048
     Dates: start: 20241104, end: 20241231
  2. FULVESTRANT [Suspect]
     Active Substance: FULVESTRANT
     Indication: Neoplasm malignant
     Dosage: 0.5 G, 1X/DAY
     Route: 030
     Dates: start: 20241104, end: 20241104

REACTIONS (1)
  - Myelosuppression [Recovering/Resolving]

NARRATIVE: CASE EVENT DATE: 20241231
